FAERS Safety Report 15227865 (Version 1)
Quarter: 2018Q3

REPORT INFORMATION
  Report Type: Spontaneous
  Country: US (occurrence: US)
  Receive Date: 20180801
  Receipt Date: 20180801
  Transmission Date: 20181010
  Serious: No
  Sender: FDA-Public Use
  Company Number: US-BAYER-2018-139511

PATIENT
  Age: 74 Year
  Sex: Female
  Weight: 46.98 kg

DRUGS (1)
  1. MIRALAX [Suspect]
     Active Substance: POLYETHYLENE GLYCOL 3350
     Indication: UNEVALUABLE EVENT
     Route: 048

REACTIONS (7)
  - Product use in unapproved indication [Unknown]
  - Abnormal faeces [Not Recovered/Not Resolved]
  - Diarrhoea [Not Recovered/Not Resolved]
  - Product use issue [Unknown]
  - Unevaluable event [Not Recovered/Not Resolved]
  - Product prescribing issue [Unknown]
  - Off label use [Unknown]
